FAERS Safety Report 12684438 (Version 1)
Quarter: 2016Q3

REPORT INFORMATION
  Report Type: Not Available
  Country: GB (occurrence: GB)
  Receive Date: 20160825
  Receipt Date: 20160825
  Transmission Date: 20161109
  Serious: Yes (Other)
  Sender: FDA-Public Use
  Company Number: GB-CONCORDIA PHARMACEUTICALS INC.-CO-PL-UK-2016-438

PATIENT
  Age: 49 Year
  Sex: Female

DRUGS (8)
  1. CETIRIZINE [Concomitant]
     Active Substance: CETIRIZINE HYDROCHLORIDE
     Dates: start: 20150727
  2. HYPROMELLOSE [Concomitant]
     Active Substance: HYPROMELLOSES
     Dates: start: 20160726
  3. SERTRALINE [Concomitant]
     Active Substance: SERTRALINE HYDROCHLORIDE
  4. VAGIFEM [Concomitant]
     Active Substance: ESTRADIOL
     Dates: start: 20160112
  5. PARACETAMOL [Concomitant]
     Active Substance: ACETAMINOPHEN
     Dates: start: 20150727
  6. HYDROXYCHLOROQUINE SULFATE. [Suspect]
     Active Substance: HYDROXYCHLOROQUINE SULFATE
     Indication: PRODUCT USED FOR UNKNOWN INDICATION
     Route: 065
     Dates: start: 20160422
  7. FUCIBET [Concomitant]
     Dates: start: 20160713, end: 20160714
  8. MELOXICAM. [Concomitant]
     Active Substance: MELOXICAM
     Dates: start: 20160422

REACTIONS (3)
  - Chest pain [Recovered/Resolved]
  - Vomiting [Recovered/Resolved]
  - Flushing [Unknown]

NARRATIVE: CASE EVENT DATE: 20160803
